FAERS Safety Report 14954862 (Version 1)
Quarter: 2018Q2

REPORT INFORMATION
  Report Type: Spontaneous
  Country: US (occurrence: US)
  Receive Date: 20180530
  Receipt Date: 20180530
  Transmission Date: 20180711
  Serious: No
  Sender: FDA-Public Use
  Company Number: US-ASTRAZENECA-2018SE59389

PATIENT
  Sex: Female

DRUGS (2)
  1. FASENRA [Suspect]
     Active Substance: BENRALIZUMAB
     Indication: EOSINOPHIL COUNT INCREASED
     Route: 058
     Dates: start: 20180308
  2. FASENRA [Suspect]
     Active Substance: BENRALIZUMAB
     Indication: ASTHMA
     Route: 058
     Dates: start: 20180308

REACTIONS (3)
  - Joint stiffness [Unknown]
  - Sensation of foreign body [Not Recovered/Not Resolved]
  - Weight increased [Unknown]
